FAERS Safety Report 10045367 (Version 1)
Quarter: 2014Q1

REPORT INFORMATION
  Report Type: Spontaneous
  Country: US (occurrence: US)
  Receive Date: 20140328
  Receipt Date: 20140328
  Transmission Date: 20141002
  Serious: No
  Sender: FDA-Public Use
  Company Number: US-PFIZER INC-2014087353

PATIENT
  Sex: Male

DRUGS (2)
  1. LYRICA [Suspect]
     Indication: SPINAL COLUMN STENOSIS
     Dosage: ONE A DAY
  2. LYRICA [Suspect]
     Dosage: TWO A DAY/ TWICE A DAY DOSAGE

REACTIONS (2)
  - Somnolence [Unknown]
  - Fatigue [Unknown]
